FAERS Safety Report 8181651-8 (Version None)
Quarter: 2012Q1

REPORT INFORMATION
  Report Type: 
  Country: None (occurrence: None)
  Receive Date: 20120302
  Receipt Date: 20120222
  Transmission Date: 20120608
  Serious: Yes (Other)
  Sender: FDA-Public Use
  Company Number: RU-ASTRAZENECA-2012SE13107

PATIENT
  Age: 42 Year
  Sex: Male

DRUGS (4)
  1. SEROQUEL [Suspect]
     Route: 048
  2. CLOSASTENE [Concomitant]
  3. HALOPERIDOL DECANOATE [Concomitant]
  4. CYCLODOL [Concomitant]

REACTIONS (3)
  - DERMATITIS ATOPIC [None]
  - PRURITUS [None]
  - RASH PAPULAR [None]
